FAERS Safety Report 7494235-1 (Version None)
Quarter: 2011Q2

REPORT INFORMATION
  Report Type: 
  Country: None (occurrence: None)
  Receive Date: 20110520
  Receipt Date: 20110518
  Transmission Date: 20111010
  Serious: No
  Sender: FDA-Public Use
  Company Number: US-PFIZER INC-2011107734

PATIENT
  Sex: Male
  Weight: 83.9 kg

DRUGS (4)
  1. ZETIA [Concomitant]
     Indication: CARDIAC DISORDER
     Dosage: UNK
  2. PLAVIX [Concomitant]
     Indication: CARDIAC DISORDER
     Dosage: UNK
  3. CADUET [Suspect]
     Indication: CARDIAC OPERATION
     Dosage: 5/80 MG, UNK
     Route: 048
     Dates: start: 20100101
  4. ISOSORBIDE [Concomitant]
     Indication: CARDIAC DISORDER
     Dosage: UNK

REACTIONS (2)
  - MEDICATION RESIDUE [None]
  - BLOOD ALKALINE PHOSPHATASE INCREASED [None]
